FAERS Safety Report 7417963-2 (Version None)
Quarter: 2011Q2

REPORT INFORMATION
  Report Type: 
  Country: None (occurrence: None)
  Receive Date: 20110415
  Receipt Date: 20110318
  Transmission Date: 20111010
  Serious: No
  Sender: FDA-Public Use
  Company Number: US-B.I. PHARMACEUTICALS,INC./RIDGEFIELD-2011-BP-05707BP

PATIENT
  Sex: Male

DRUGS (9)
  1. LISINOPRIL [Concomitant]
     Indication: HYPERTENSION
  2. ALLOPURINOL [Concomitant]
     Indication: GOUT
  3. METFORMIN [Concomitant]
     Indication: TYPE 2 DIABETES MELLITUS
  4. SIMVASTATIN [Concomitant]
     Indication: BLOOD CHOLESTEROL INCREASED
  5. HYDROCHLOROTHIAZIDE [Concomitant]
     Indication: HYPERTENSION
  6. AMIODARONE HCL [Concomitant]
     Indication: HEART RATE IRREGULAR
  7. PRADAXA [Suspect]
     Indication: ATRIAL FIBRILLATION
     Dosage: 300 MG
     Route: 048
     Dates: start: 20110101
  8. OMEPRAZOLE [Concomitant]
     Indication: GASTROOESOPHAGEAL REFLUX DISEASE
  9. AMLODIPINE [Concomitant]
     Indication: HYPERTENSION

REACTIONS (2)
  - WEIGHT INCREASED [None]
  - ARTHRITIS [None]
